APPROVED DRUG PRODUCT: LACTULOSE
Active Ingredient: LACTULOSE
Strength: 10GM/15ML
Dosage Form/Route: SOLUTION;ORAL, RECTAL
Application: A090426 | Product #001
Applicant: ANI PHARMACEUTICALS INC
Approved: Nov 21, 2008 | RLD: No | RS: No | Type: DISCN